FAERS Safety Report 6050515-8 (Version None)
Quarter: 2009Q1

REPORT INFORMATION
  Report Type: 
  Country: None (occurrence: None)
  Receive Date: 20090126
  Receipt Date: 20090116
  Transmission Date: 20090719
  Serious: Yes (Other)
  Sender: FDA-Public Use
  Company Number: PHHY2009BR00808

PATIENT
  Age: 72 Year
  Sex: Female

DRUGS (2)
  1. HYDERGINE [Suspect]
     Indication: DEPRESSION
     Dosage: 1 MG
     Route: 048
     Dates: start: 20040101
  2. HYDERGINE [Suspect]
     Indication: NERVOUSNESS
     Dosage: 4.5 MG
     Route: 048
     Dates: start: 20040101

REACTIONS (4)
  - DIABETES MELLITUS [None]
  - DRUG DISPENSING ERROR [None]
  - INCORRECT DOSE ADMINISTERED [None]
  - PRODUCT QUALITY ISSUE [None]
